FAERS Safety Report 18004447 (Version 1)
Quarter: 2020Q3

REPORT INFORMATION
  Report Type: Report from Study
  Country: GB (occurrence: GB)
  Receive Date: 20200709
  Receipt Date: 20200709
  Transmission Date: 20201103
  Serious: Yes (Other)
  Sender: FDA-Public Use
  Company Number: GB-SAMSUNG BIOEPIS-SB-2019-38528

PATIENT
  Age: 54 Year
  Sex: Female

DRUGS (1)
  1. IMRALDI [Suspect]
     Active Substance: ADALIMUMAB
     Indication: ANKYLOSING SPONDYLITIS
     Route: 058
     Dates: start: 20200213

REACTIONS (13)
  - Multi-organ disorder [Unknown]
  - Eye disorder [Unknown]
  - Lower respiratory tract infection [Unknown]
  - Rheumatoid arthritis [Unknown]
  - Asthma [Unknown]
  - Anaemia [Unknown]
  - Renal failure [Unknown]
  - Osteoarthritis [Unknown]
  - Illness [Not Recovered/Not Resolved]
  - Decubitus ulcer [Unknown]
  - Diabetes mellitus [Unknown]
  - Wound infection [Unknown]
  - Pain [Unknown]
